FAERS Safety Report 6015233-0 (Version None)
Quarter: 2008Q4

REPORT INFORMATION
  Report Type: 
  Country: None (occurrence: None)
  Receive Date: 20081219
  Receipt Date: 20081219
  Transmission Date: 20090506
  Serious: Yes (Hospitalization)
  Sender: FDA-Public Use
  Company Number: None

PATIENT
  Sex: Female
  Weight: 86 kg

DRUGS (1)
  1. INFLIXIMAB [Suspect]
     Indication: RHEUMATOID ARTHRITIS
     Dosage: 3MG/KG EVERY 8 WEEKS IV
     Route: 042
     Dates: start: 20060801, end: 20080912

REACTIONS (14)
  - ADRENAL MASS [None]
  - CANDIDIASIS [None]
  - COUGH [None]
  - DRUG INEFFECTIVE [None]
  - HYPERHIDROSIS [None]
  - IMMUNOSUPPRESSION [None]
  - NODULE [None]
  - PLEURITIC PAIN [None]
  - PULMONARY MASS [None]
  - PYREXIA [None]
  - RASH PUSTULAR [None]
  - SKIN LESION [None]
  - SPOROTRICHOSIS [None]
  - SYNCOPE [None]
